FAERS Safety Report 10250348 (Version 2)
Quarter: 2014Q2

REPORT INFORMATION
  Report Type: Spontaneous
  Country: US (occurrence: US)
  Receive Date: 20140620
  Receipt Date: 20140630
  Transmission Date: 20141212
  Serious: Yes (Other)
  Sender: FDA-Public Use
  Company Number: CHPA2014US008196

PATIENT
  Age: 64 Year
  Sex: Female

DRUGS (3)
  1. VOLTAREN GEL [Suspect]
     Indication: TENDONITIS
     Dosage: A LITTLE BIT, UNK
     Route: 061
     Dates: start: 201405
  2. VOLTAREN GEL [Suspect]
     Indication: CARPAL TUNNEL SYNDROME
  3. VOLTAREN GEL [Suspect]
     Indication: OFF LABEL USE

REACTIONS (9)
  - Diverticulitis [Recovering/Resolving]
  - Pyrexia [Recovering/Resolving]
  - Skin reaction [Recovering/Resolving]
  - Skin burning sensation [Recovering/Resolving]
  - Erythema [Recovering/Resolving]
  - Pruritus [Recovering/Resolving]
  - Dry skin [Recovering/Resolving]
  - Therapeutic response changed [Unknown]
  - Drug administered at inappropriate site [Unknown]
